FAERS Safety Report 24063984 (Version 2)
Quarter: 2024Q3

REPORT INFORMATION
  Report Type: Spontaneous
  Country: CA (occurrence: CA)
  Receive Date: 20240709
  Receipt Date: 20240730
  Transmission Date: 20241016
  Serious: No
  Sender: Haleon PLC
  Company Number: CA-JNJFOC-20240629186

PATIENT
  Age: 6 Year
  Sex: Female

DRUGS (1)
  1. NICORETTE [Suspect]
     Active Substance: NICOTINE
     Indication: Accidental exposure to product
     Dosage: TIME INTERVAL: 1 TOTAL: EXPDATE:20260228 1 GUM ONLY ONE TIME
     Route: 048
     Dates: start: 20240315, end: 20240315

REACTIONS (6)
  - Nausea [Recovering/Resolving]
  - Accidental exposure to product by child [Unknown]
  - Failure of child resistant product closure [Unknown]
  - Illness [Recovering/Resolving]
  - Vomiting [Recovering/Resolving]
  - Dizziness [Recovering/Resolving]

NARRATIVE: CASE EVENT DATE: 20240315
